FAERS Safety Report 5267436-0 (Version None)
Quarter: 2007Q1

REPORT INFORMATION
  Report Type: 
  Country: None (occurrence: None)
  Receive Date: 20070316
  Receipt Date: 20070306
  Transmission Date: 20070707
  Serious: Yes (Hospitalization)
  Sender: FDA-Public Use
  Company Number: US-KINGPHARMUSA00001-K200700257

PATIENT

DRUGS (8)
  1. ALTACE [Suspect]
     Dosage: 1.25 MG, QD
     Route: 048
     Dates: start: 20060829
  2. PLAVIX [Suspect]
     Dosage: 75 MG, QD
     Route: 048
     Dates: start: 20060829
  3. HALDOL [Suspect]
     Dosage: 2 DROPS, AM, QD
     Route: 048
     Dates: start: 20060829
  4. DURAGESIC-100 [Suspect]
     Route: 062
     Dates: start: 20060101
  5. ACTISKENAN [Suspect]
     Dosage: UNK, PRN
     Route: 048
     Dates: start: 20060601
  6. CELIPROLOL [Suspect]
     Dosage: 200 MG, QD
     Route: 048
     Dates: start: 20060829
  7. KARDEGIC    /00002703/ [Concomitant]
     Dosage: 160 MG, UNK
     Route: 048
     Dates: start: 20060829
  8. FONZYLANE [Concomitant]
     Dosage: 2 U, UNK
     Dates: start: 20060829

REACTIONS (9)
  - AMNESIA [None]
  - ANAEMIA [None]
  - CEREBRAL ATROPHY [None]
  - COGNITIVE DISORDER [None]
  - CONFUSIONAL STATE [None]
  - DEMENTIA [None]
  - DISORIENTATION [None]
  - URINARY RETENTION [None]
  - WEIGHT DECREASED [None]
